FAERS Safety Report 4733509-1 (Version None)
Quarter: 2005Q3

REPORT INFORMATION
  Report Type: 
  Country: None (occurrence: None)
  Receive Date: 20050725
  Receipt Date: 20040713
  Transmission Date: 20060218
  Serious: Yes (Death)
  Sender: FDA-Public Use
  Company Number: USA-2003-0011362

PATIENT
  Age: 39 Year
  Sex: Female

DRUGS (11)
  1. MORPHINE SULFATE (SIMILAR TO NDA 19-516) [Suspect]
  2. HYDROCODONE [Suspect]
  3. DIHYDROCODEINE [Suspect]
  4. DIAZEPAM [Suspect]
  5. OXAZEPAM [Suspect]
  6. ETHOSUXIMIDE [Suspect]
  7. FLUOXETINE [Suspect]
  8. COCAINE [Suspect]
  9. CAFFEINE [Suspect]
  10. NICOTINE [Suspect]
  11. TEMAZEPAM [Suspect]

REACTIONS (1)
  - MULTIPLE DRUG OVERDOSE [None]
